FAERS Safety Report 6560506-6 (Version None)
Quarter: 2010Q1

REPORT INFORMATION
  Report Type: 
  Country: None (occurrence: None)
  Receive Date: 20100129
  Receipt Date: 20090922
  Transmission Date: 20100710
  Serious: Yes (Hospitalization, Other)
  Sender: FDA-Public Use
  Company Number: US-ABBOTT-09P-163-0598685-00

PATIENT
  Sex: Male

DRUGS (9)
  1. HUMIRA [Suspect]
     Indication: ANKYLOSING SPONDYLITIS
     Dates: start: 20070801
  2. HUMIRA [Suspect]
  3. HUMIRA [Suspect]
     Dates: start: 20090501
  4. UNKNOWN ANTIBIOTIC [Concomitant]
     Indication: INFECTION PROPHYLAXIS
     Dates: start: 20090201
  5. NAPROSYN [Concomitant]
     Indication: PAIN
  6. FLEXERIL [Concomitant]
     Indication: MUSCLE RELAXANT THERAPY
  7. TOPROL-XL [Concomitant]
     Indication: CARDIAC DISORDER
     Dates: start: 20070101
  8. PLAVIX [Concomitant]
     Indication: CARDIAC DISORDER
     Dates: start: 20070101
  9. ALTACE [Concomitant]
     Indication: CARDIAC DISORDER
     Dates: start: 20070101

REACTIONS (3)
  - CORONARY ARTERY DISEASE [None]
  - JOINT STIFFNESS [None]
  - RECTAL ABSCESS [None]
